FAERS Safety Report 4896429-8 (Version None)
Quarter: 2006Q1

REPORT INFORMATION
  Report Type: 
  Country: None (occurrence: None)
  Receive Date: 20060126
  Receipt Date: 20060118
  Transmission Date: 20060701
  Serious: Yes (Other)
  Sender: FDA-Public Use
  Company Number: 2005145967

PATIENT
  Sex: Female

DRUGS (9)
  1. LYRICA [Suspect]
     Indication: PAIN
     Dosage: 150 MG
  2. CELEBREX [Concomitant]
  3. TOPROL-XL [Concomitant]
  4. ZOCOR [Concomitant]
  5. SOMA (CARISOPROLOL) [Concomitant]
  6. NEXIUM [Concomitant]
  7. RESTORIL [Concomitant]
  8. FOSAMAX [Concomitant]
  9. DIOVAN [Concomitant]

REACTIONS (7)
  - AGITATION [None]
  - DISCOMFORT [None]
  - DIZZINESS [None]
  - DYSKINESIA [None]
  - FEAR [None]
  - NERVOUSNESS [None]
  - SOMNOLENCE [None]
